FAERS Safety Report 6083745-X (Version None)
Quarter: 2009Q1

REPORT INFORMATION
  Report Type: 
  Country: None (occurrence: None)
  Receive Date: 20090219
  Receipt Date: 20090210
  Transmission Date: 20090719
  Serious: Yes (Other)
  Sender: FDA-Public Use
  Company Number: US-PFIZER INC-2009168397

PATIENT
  Sex: Female
  Weight: 81.646 kg

DRUGS (2)
  1. DEPO-PROVERA [Suspect]
     Indication: CONTRACEPTION
  2. DEPAKOTE [Suspect]
     Indication: DEPRESSION

REACTIONS (4)
  - BLOOD URINE PRESENT [None]
  - DYSPNOEA [None]
  - MALAISE [None]
  - VOMITING [None]
